FAERS Safety Report 4317570-4 (Version None)
Quarter: 2004Q1

REPORT INFORMATION
  Report Type: 
  Country: None (occurrence: None)
  Receive Date: 20040312
  Receipt Date: 20040225
  Transmission Date: 20041129
  Serious: Yes (Hospitalization)
  Sender: FDA-Public Use
  Company Number: DSA_24038_2004

PATIENT
  Age: 43 Year
  Sex: Female

DRUGS (3)
  1. LORAZEPAM [Suspect]
     Dates: start: 20040222, end: 20040222
  2. TREVILOR [Suspect]
     Dates: start: 20040222, end: 20040222
  3. STANGYL [Suspect]
     Dates: start: 20040222, end: 20040222

REACTIONS (6)
  - BLOOD CREATINE PHOSPHOKINASE INCREASED [None]
  - CONVULSION [None]
  - DELIRIUM [None]
  - HAEMATEMESIS [None]
  - INTENTIONAL OVERDOSE [None]
  - SOMNOLENCE [None]
